FAERS Safety Report 11240100 (Version 1)
Quarter: 2015Q3

REPORT INFORMATION
  Report Type: Spontaneous
  Country: US (occurrence: None)
  Receive Date: 20150701
  Receipt Date: 20150701
  Transmission Date: 20151125
  Serious: No
  Sender: FDA-Public Use
  Company Number: None

PATIENT
  Age: 77 Year
  Sex: Male
  Weight: 77.8 kg

DRUGS (1)
  1. DIPHENHYDRAMINE. [Suspect]
     Active Substance: DIPHENHYDRAMINE
     Indication: PREMEDICATION
     Dosage: 25 MG  UD  PO
     Route: 048
     Dates: start: 20150306, end: 20150306

REACTIONS (3)
  - Nausea [None]
  - Pruritus [None]
  - Muscle spasms [None]

NARRATIVE: CASE EVENT DATE: 20150306
